FAERS Safety Report 7747284-X (Version None)
Quarter: 2011Q3

REPORT INFORMATION
  Report Type: 
  Country: None (occurrence: None)
  Receive Date: 20110907
  Receipt Date: 20110831
  Transmission Date: 20111222
  Serious: Yes (Other)
  Sender: FDA-Public Use
  Company Number: 1000023384

PATIENT
  Sex: Male

DRUGS (1)
  1. DALIRESP [Suspect]
     Dosage: ORAL
     Route: 048

REACTIONS (2)
  - SHOCK [None]
  - OVERDOSE [None]
